FAERS Safety Report 4377732-7 (Version None)
Quarter: 2004Q2

REPORT INFORMATION
  Report Type: 
  Country: None (occurrence: None)
  Receive Date: 20040615
  Receipt Date: 20040601
  Transmission Date: 20050107
  Serious: Yes (Other)
  Sender: FDA-Public Use
  Company Number: PHHO2004CO07938

PATIENT
  Age: 76 Year
  Sex: Female

DRUGS (4)
  1. STARLIX [Suspect]
     Indication: DIABETES MELLITUS
     Dosage: 240 MG, QD
     Route: 048
     Dates: start: 20010101
  2. ASPIRIN [Concomitant]
  3. ENALAPRIL [Concomitant]
  4. METFORMIN HCL [Concomitant]

REACTIONS (4)
  - BLOOD GLUCOSE DECREASED [None]
  - FALL [None]
  - HEAD INJURY [None]
  - SYNCOPE [None]
